FAERS Safety Report 15384491 (Version 2)
Quarter: 2018Q3

REPORT INFORMATION
  Report Type: Spontaneous
  Country: US (occurrence: US)
  Receive Date: 20180914
  Receipt Date: 20180925
  Transmission Date: 20181010
  Serious: Yes (Disabling)
  Sender: FDA-Public Use
  Company Number: US-MICRO LABS LIMITED-ML2018-02010

PATIENT
  Sex: Female

DRUGS (3)
  1. LYRICA [Suspect]
     Active Substance: PREGABALIN
     Indication: LYME DISEASE
  2. CROMOLYN SODIUM ORAL SOLUTION 100 MG/5 ML [Suspect]
     Active Substance: CROMOLYN SODIUM
     Route: 048
     Dates: start: 2018
  3. KLONOPIN [Suspect]
     Active Substance: CLONAZEPAM
     Indication: LYME DISEASE

REACTIONS (4)
  - Myalgia [Unknown]
  - Feeling abnormal [Unknown]
  - Dizziness [Recovering/Resolving]
  - Malaise [Unknown]

NARRATIVE: CASE EVENT DATE: 2018
